FAERS Safety Report 12172895 (Version 2)
Quarter: 2016Q1

REPORT INFORMATION
  Report Type: Spontaneous
  Country: US (occurrence: US)
  Receive Date: 20160311
  Receipt Date: 20160329
  Transmission Date: 20160526
  Serious: Yes (Other)
  Sender: FDA-Public Use
  Company Number: US-OTSUKA-2016_004594

PATIENT
  Age: 40 Year
  Sex: Male

DRUGS (2)
  1. ABILIFY MAINTENA [Suspect]
     Active Substance: ARIPIPRAZOLE
     Indication: SCHIZOAFFECTIVE DISORDER BIPOLAR TYPE
     Dosage: 400 MG, MONTHLY
     Route: 030
     Dates: start: 2015, end: 2015
  2. ABILIFY MAINTENA [Suspect]
     Active Substance: ARIPIPRAZOLE
     Dosage: 300 MG, QM
     Route: 030
     Dates: start: 2015

REACTIONS (6)
  - Temperature intolerance [Unknown]
  - Off label use [Unknown]
  - Bedridden [Recovered/Resolved]
  - Musculoskeletal stiffness [Recovered/Resolved]
  - Product preparation error [Unknown]
  - Myalgia [Unknown]

NARRATIVE: CASE EVENT DATE: 2015
